FAERS Safety Report 4999241-4 (Version None)
Quarter: 2006Q2

REPORT INFORMATION
  Report Type: 
  Country: None (occurrence: None)
  Receive Date: 20060511
  Receipt Date: 20060502
  Transmission Date: 20061013
  Serious: Yes (Hospitalization)
  Sender: FDA-Public Use
  Company Number: PHRM2006FR01463

PATIENT
  Age: 40 Year
  Sex: Female
  Weight: 59 kg

DRUGS (4)
  1. CLOZAPINE [Suspect]
     Dosage: 75 MG/DAY
     Route: 048
     Dates: start: 20051006, end: 20051124
  2. LORAZEPAM [Suspect]
     Dosage: 3.75 MG/DAY
     Route: 048
     Dates: start: 20050920, end: 20051130
  3. IKARAN ^PIERRE FABRE^ [Concomitant]
     Dosage: 15 MG/DAY
     Route: 048
     Dates: start: 20051113
  4. EFFEXOR [Concomitant]
     Dosage: 75 MG/DAY
     Route: 048
     Dates: start: 20051118

REACTIONS (2)
  - PAROTID GLAND ENLARGEMENT [None]
  - SALIVARY HYPERSECRETION [None]
